FAERS Safety Report 7578119-6 (Version None)
Quarter: 2011Q2

REPORT INFORMATION
  Report Type: 
  Country: None (occurrence: None)
  Receive Date: 20110628
  Receipt Date: 20110506
  Transmission Date: 20111010
  Serious: Yes (Other)
  Sender: FDA-Public Use
  Company Number: A0609586A

PATIENT
  Age: 59 Year
  Sex: Female

DRUGS (16)
  1. BYSTOLIC [Concomitant]
     Dosage: 10MG PER DAY
     Route: 048
  2. PAXIL CR [Suspect]
     Dosage: 25MG PER DAY
     Route: 048
     Dates: start: 20060523
  3. PAXIL CR [Suspect]
     Indication: ANXIETY
     Dosage: 37.5MG PER DAY
     Route: 048
     Dates: start: 19970101
  4. AMARYL [Concomitant]
  5. ZOCOR [Concomitant]
  6. INSULIN [Concomitant]
  7. METFORMIN HCL [Concomitant]
     Dosage: 1000MG TWICE PER DAY
     Route: 048
  8. CRESTOR [Concomitant]
     Indication: BLOOD CHOLESTEROL INCREASED
     Dosage: 10MG PER DAY
     Route: 048
  9. PRISTIQ [Suspect]
     Indication: ANXIETY
     Route: 065
     Dates: start: 20110301, end: 20110401
  10. LOPRESSOR [Concomitant]
  11. PAROXETINE HCL [Suspect]
     Indication: ANXIETY
     Dosage: 37.5MG UNKNOWN
     Route: 048
  12. NOVOLOG [Concomitant]
     Dosage: 40UNIT TWICE PER DAY
  13. HYDROCHLOROTHIAZIDE [Concomitant]
     Dosage: 12.5MG PER DAY
     Route: 048
  14. XALATAN [Concomitant]
     Dosage: 2DROP PER DAY
  15. AVANDIA [Concomitant]
  16. XANAX [Concomitant]
     Indication: ANXIETY

REACTIONS (11)
  - DRUG INEFFECTIVE [None]
  - HEART RATE INCREASED [None]
  - PANIC ATTACK [None]
  - TENSION [None]
  - SUICIDAL IDEATION [None]
  - TINNITUS [None]
  - DYSACUSIS [None]
  - PRODUCT QUALITY ISSUE [None]
  - ANXIETY [None]
  - MENTAL DISORDER [None]
  - TREMOR [None]
